FAERS Safety Report 23946765 (Version 1)
Quarter: 2024Q2

REPORT INFORMATION
  Report Type: Spontaneous
  Country: US (occurrence: None)
  Receive Date: 20240606
  Receipt Date: 20240606
  Transmission Date: 20240716
  Serious: Yes (unspecified)
  Sender: FDA-Public Use
  Company Number: None

PATIENT
  Age: 43 Year
  Sex: Male
  Weight: 101.25 kg

DRUGS (1)
  1. GADAVIST [Suspect]
     Active Substance: GADOBUTROL
     Indication: Dizziness
     Dosage: OTHER FREQUENCY : ONCE;?
     Route: 040
     Dates: start: 20240605, end: 20240605

REACTIONS (6)
  - Nausea [None]
  - Dizziness [None]
  - Pruritus [None]
  - Urticaria [None]
  - Swelling face [None]
  - Scan with contrast [None]

NARRATIVE: CASE EVENT DATE: 20240605
